FAERS Safety Report 7601753-1 (Version None)
Quarter: 2011Q3

REPORT INFORMATION
  Report Type: 
  Country: None (occurrence: None)
  Receive Date: 20110711
  Receipt Date: 20110707
  Transmission Date: 20111222
  Serious: Yes (Hospitalization, Other)
  Sender: FDA-Public Use
  Company Number: PT-PFIZER INC-2011119526

PATIENT
  Age: 72 Year
  Sex: Male

DRUGS (10)
  1. LASIX [Concomitant]
     Dosage: UNK
     Route: 048
     Dates: end: 20110512
  2. JANUMET [Concomitant]
     Dosage: UNK
     Route: 048
     Dates: end: 20110512
  3. ALLOPURINOL [Concomitant]
     Dosage: UNK
     Route: 048
  4. VASTAREL LM [Concomitant]
     Dosage: UNK
     Route: 048
  5. EPLERENONE [Suspect]
     Dosage: 25 MG, ALTERNATE DAY
     Route: 048
     Dates: start: 20110526
  6. EPLERENONE [Suspect]
     Indication: CARDIAC FAILURE
     Dosage: 25 MG, 1X/DAY
     Route: 048
     Dates: start: 20101111, end: 20110512
  7. SIMVASTATIN [Concomitant]
     Dosage: UNK
     Route: 048
  8. DILBLOC [Concomitant]
     Dosage: 25 MG, UNK
     Route: 048
  9. A-A-S 150 [Concomitant]
     Dosage: UNK
     Route: 048
  10. PERINDOPRIL ERBUMINE [Concomitant]
     Dosage: 10 MG, UNK
     Route: 048
     Dates: end: 20110512

REACTIONS (2)
  - HYPOTENSION [None]
  - RENAL FAILURE [None]
